FAERS Safety Report 13571120 (Version 1)
Quarter: 2017Q2

REPORT INFORMATION
  Report Type: Report from Study
  Country: US (occurrence: US)
  Receive Date: 20170523
  Receipt Date: 20170523
  Transmission Date: 20170830
  Serious: No
  Sender: FDA-Public Use
  Company Number: US-AMGEN-USASL2017075956

PATIENT
  Age: 43 Year
  Sex: Female

DRUGS (1)
  1. ENBREL [Suspect]
     Active Substance: ETANERCEPT
     Indication: RHEUMATOID ARTHRITIS
     Dosage: UNK UNK, QWK
     Route: 065

REACTIONS (5)
  - Diarrhoea [Recovered/Resolved]
  - Injection site pruritus [Recovering/Resolving]
  - Injection site warmth [Recovering/Resolving]
  - Headache [Recovered/Resolved]
  - Injection site erythema [Recovering/Resolving]
